FAERS Safety Report 7404178-7 (Version None)
Quarter: 2011Q2

REPORT INFORMATION
  Report Type: 
  Country: None (occurrence: None)
  Receive Date: 20110408
  Receipt Date: 20110316
  Transmission Date: 20111010
  Serious: No
  Sender: FDA-Public Use
  Company Number: US-B.I. PHARMACEUTICALS,INC./RIDGEFIELD-2011-BP-08484BP

PATIENT
  Sex: Female

DRUGS (8)
  1. MAGNESIUM OXIDE [Suspect]
     Indication: PROPHYLAXIS
  2. MULTAQ [Suspect]
     Indication: ATRIAL FIBRILLATION
  3. METOPROLOL [Concomitant]
     Indication: HYPERTENSION
  4. GUANFACINE HYDROCHLORIDE [Concomitant]
     Indication: HYPERTENSION
  5. I-CAPS [Concomitant]
     Indication: MACULAR DEGENERATION
  6. CRESTOR [Concomitant]
     Indication: BLOOD CHOLESTEROL INCREASED
  7. VITAMINS [Concomitant]
     Indication: PROPHYLAXIS
  8. PRADAXA [Suspect]
     Indication: ATRIAL FIBRILLATION
     Dosage: 300 MG
     Route: 048
     Dates: start: 20101101

REACTIONS (4)
  - OEDEMA PERIPHERAL [None]
  - HAEMATOCHEZIA [None]
  - DIARRHOEA [None]
  - OCULAR HYPERAEMIA [None]
